FAERS Safety Report 14939948 (Version 8)
Quarter: 2018Q4

REPORT INFORMATION
  Report Type: Report from Study
  Country: CA (occurrence: CA)
  Receive Date: 20180525
  Receipt Date: 20181214
  Transmission Date: 20190204
  Serious: Yes (Hospitalization, Other)
  Sender: FDA-Public Use
  Company Number: CA-TAKEDA-2018TUS017833

PATIENT
  Age: 60 Year
  Sex: Male

DRUGS (2)
  1. VEDOLIZUMAB [Suspect]
     Active Substance: VEDOLIZUMAB
     Indication: CROHN^S DISEASE
     Dosage: 300 MG, UNK
     Route: 042
     Dates: start: 20180508, end: 20181012
  2. VITAMIN D [Concomitant]
     Active Substance: CHOLECALCIFEROL
     Dosage: UNK

REACTIONS (7)
  - Abdominal discomfort [Unknown]
  - Product dose omission [Unknown]
  - Haemorrhage [Not Recovered/Not Resolved]
  - Fistula discharge [Not Recovered/Not Resolved]
  - Abdominal pain [Unknown]
  - Enterocutaneous fistula [Not Recovered/Not Resolved]
  - Treatment failure [Unknown]
